FAERS Safety Report 24443510 (Version 2)
Quarter: 2024Q4

REPORT INFORMATION
  Report Type: Report from Study
  Country: US (occurrence: US)
  Receive Date: 20241016
  Receipt Date: 20241017
  Transmission Date: 20250115
  Serious: No
  Sender: ROCHE
  Company Number: US-ROCHE-2067501

PATIENT
  Age: 53 Year
  Sex: Male

DRUGS (8)
  1. RITUXAN [Suspect]
     Active Substance: RITUXIMAB
     Indication: Neuromyelitis optica spectrum disorder
     Dosage: FORM STRENGTH: 10 MG/ML. ?SUBSEQUENT DOSE RECEIVED ON 27/SEP/2017, 28/DEC/2018, 28/JUN/2019, 27/DEC/
     Route: 041
  2. PREDNISONE [Concomitant]
     Active Substance: PREDNISONE
  3. CYTOXAN [Concomitant]
     Active Substance: CYCLOPHOSPHAMIDE
  4. METHYLPREDNISOLONE [Concomitant]
     Active Substance: METHYLPREDNISOLONE
  5. NEURONTIN [Concomitant]
     Active Substance: GABAPENTIN
  6. LIDOCAINE [Concomitant]
     Active Substance: LIDOCAINE
  7. NYSTATIN [Concomitant]
     Active Substance: NYSTATIN
  8. ALEVE [Concomitant]
     Active Substance: NAPROXEN SODIUM

REACTIONS (2)
  - No adverse event [Unknown]
  - Off label use [Unknown]
